FAERS Safety Report 19874591 (Version 12)
Quarter: 2024Q1

REPORT INFORMATION
  Report Type: Spontaneous
  Country: CA (occurrence: CA)
  Receive Date: 20210922
  Receipt Date: 20240308
  Transmission Date: 20240410
  Serious: Yes (Other)
  Sender: FDA-Public Use
  Company Number: CA-SCALL-2021-CA-001419

PATIENT
  Age: 43 Year
  Sex: Female

DRUGS (72)
  1. CANDESARTAN CILEXETIL [Suspect]
     Active Substance: CANDESARTAN CILEXETIL
     Indication: Migraine
     Route: 048
  2. FETZIMA [Suspect]
     Active Substance: LEVOMILNACIPRAN HYDROCHLORIDE
     Indication: Product used for unknown indication
     Dosage: 1 DF QD / 1 DF QOD
     Route: 065
  3. FINACEA [Suspect]
     Active Substance: AZELAIC ACID
     Indication: Product used for unknown indication
     Dosage: 1 DF DAILY / UNK
     Route: 065
  4. HYDROMORPHONE [Suspect]
     Active Substance: HYDROMORPHONE
     Indication: Product used for unknown indication
     Dosage: 1 DF UNK / 4 DF DAILY / 1 DF DAILY / UNK / 1 DF QOD / 2 DF BID
     Route: 065
  5. LAMICTAL [Suspect]
     Active Substance: LAMOTRIGINE
     Dosage: DOSE TEXT: 1 EVERY 2 DAYS / DOSE TEXT: 1 EVERY 2 DAYS / UNK / UNK / 50 MG BID / 25 MG BID / DOSE TEX
     Route: 048
  6. MYRBETRIQ [Suspect]
     Active Substance: MIRABEGRON
     Indication: Product used for unknown indication
     Dosage: 1 DF QD / 1 DF QD / 1 DF QD / DOSE TEXT: 1 EVERY 2 DAYS / 1 DF DAILY
     Route: 048
  7. NAPROXEN [Suspect]
     Active Substance: NAPROXEN
     Indication: Product used for unknown indication
     Dosage: 1 DF DAILY / 2 DF Q12H / 2 DF DAILY / 4 DF DAILY / 2 DF BID / 1 DF BID / DOSE TEXT: 1 EVERY 2 DAYS /
     Route: 065
  8. PANTOPRAZOLE [Suspect]
     Active Substance: PANTOPRAZOLE
     Indication: Product used for unknown indication
     Dosage: DOSE TEXT: 1 EVERY 2 DAYS / DOSE TEXT: 3 DOSAGE FORM / DOSE TEXT: UNK / 2 DF DAILY / 3 DF DAILY / UN
     Route: 065
  9. RANITIDINE [Suspect]
     Active Substance: RANITIDINE
     Indication: Product used for unknown indication
     Route: 065
  10. CETIRIZINE HYDROCHLORIDE [Suspect]
     Active Substance: CETIRIZINE HYDROCHLORIDE
     Indication: Product used for unknown indication
     Route: 065
  11. AIMOVIG [Suspect]
     Active Substance: ERENUMAB-AOOE
     Indication: Migraine
     Dosage: DOSE TEXT: 1 EVERY 1 DAYS / UNK / UNK / UNK / UNK
     Route: 065
  12. TOPAMAX [Suspect]
     Active Substance: TOPIRAMATE
     Indication: Product used for unknown indication
     Dosage: 25 MG QD
     Route: 065
  13. DESOXIMETASONE [Suspect]
     Active Substance: DESOXIMETASONE
     Indication: Product used for unknown indication
     Dosage: 50 MG DAILY / 1 DF UNK / 2 DF DAILY / 3 DF DAILY / DOSE TEXT: UNK / 50 MG DAILY
     Route: 065
  14. TRAZODONE [Suspect]
     Active Substance: TRAZODONE HYDROCHLORIDE
     Indication: Product used for unknown indication
     Dosage: 1 DF QD / 2 DF QD / 1 DF QD
     Route: 065
  15. TRETINOIN [Suspect]
     Active Substance: TRETINOIN
     Indication: Product used for unknown indication
     Dosage: 51 WEEKS 4 DAYS / 51 WEEKS 4 DAYS / UNK
     Route: 065
  16. VITAMIN D3 [Suspect]
     Active Substance: CHOLECALCIFEROL
     Indication: Product used for unknown indication
     Route: 065
  17. DOMPERIDONE\PANTOPRAZOLE SODIUM [Suspect]
     Active Substance: DOMPERIDONE\PANTOPRAZOLE SODIUM
     Indication: Product used for unknown indication
     Dosage: 3 DF DAILY
     Route: 065
  18. PANTOPRAZOLE SODIUM [Suspect]
     Active Substance: PANTOPRAZOLE SODIUM
     Indication: Product used for unknown indication
     Dosage: 2 DF DAILY / 3 DF DAILY / 3 DF DAILY / 3 DF DAILY / 1 DF Q12H / 2 DF DAILY / 1 DF DAILY
     Route: 065
  19. PAROXETINE [Suspect]
     Active Substance: PAROXETINE
     Indication: Product used for unknown indication
     Route: 065
  20. ATOMOXETINE [Suspect]
     Active Substance: ATOMOXETINE\ATOMOXETINE HYDROCHLORIDE
     Indication: Migraine
     Dosage: 1 DF BID / 1 DF BID / 1 DF BID / UNK / 1 DF DAILY / 1 DF BID / 1 DF DAILY
     Route: 065
  21. PSEUDOEPHEDRINE HYDROCHLORIDE [Suspect]
     Active Substance: PSEUDOEPHEDRINE HYDROCHLORIDE
     Indication: Product used for unknown indication
     Route: 065
  22. VITAMIN C [Suspect]
     Active Substance: ASCORBIC ACID
     Indication: Product used for unknown indication
     Route: 065
  23. MAGNESIUM [Suspect]
     Active Substance: MAGNESIUM
     Indication: Product used for unknown indication
     Route: 065
  24. PHOSPHORUS [Suspect]
     Active Substance: PHOSPHORUS
     Indication: Product used for unknown indication
     Route: 065
  25. CALCIUM [Suspect]
     Active Substance: CALCIUM
     Indication: Product used for unknown indication
     Route: 065
  26. PSEUDOEPHEDRINE [Suspect]
     Active Substance: PSEUDOEPHEDRINE
     Indication: Product used for unknown indication
     Route: 065
  27. CETIRIZINE [Suspect]
     Active Substance: CETIRIZINE HYDROCHLORIDE
     Indication: Product used for unknown indication
     Dosage: 3 DF BID / 1 DF DAILY / DOSE TEXT: UNK / DOSE TEXT: UNK / 3 DF DAILY
     Route: 065
  28. CHOLECALCIFEROL [Suspect]
     Active Substance: CHOLECALCIFEROL
     Indication: Product used for unknown indication
     Route: 065
  29. VITAMIN D [Suspect]
     Active Substance: VITAMIN D NOS
     Indication: Nutritional supplementation
     Route: 065
  30. FLUTICASONE FUROATE [Suspect]
     Active Substance: FLUTICASONE FUROATE
     Indication: Product used for unknown indication
     Dosage: UNK/ 1 DF DAILY
     Route: 065
  31. CETIRIZINE HYDROCHLORIDE\PSEUDOEPHEDRINE HYDROCHLORIDE [Suspect]
     Active Substance: CETIRIZINE HYDROCHLORIDE\PSEUDOEPHEDRINE HYDROCHLORIDE
     Route: 065
  32. CALCIUM\CHOLECALCIFEROL\MAGNESIUM [Suspect]
     Active Substance: CALCIUM\CHOLECALCIFEROL\MAGNESIUM
     Dosage: 1 DF DAILY
     Route: 065
  33. AZELAIC ACID [Suspect]
     Active Substance: AZELAIC ACID
     Route: 065
  34. TOPICORT [Suspect]
     Active Substance: DESOXIMETASONE
     Dosage: 25 MG BID / 1 DF BID
     Route: 065
  35. ERENUMAB-AOOE [Suspect]
     Active Substance: ERENUMAB-AOOE
     Route: 065
  36. DOMPERIDONE MALEATE [Suspect]
     Active Substance: DOMPERIDONE MALEATE
     Dosage: 1 EVERY 3 DAYS
     Route: 065
  37. VITAMINS [Suspect]
     Active Substance: VITAMINS
     Route: 065
  38. VITAMIN D3 [Suspect]
     Active Substance: CHOLECALCIFEROL
     Route: 065
  39. BETAMETHASONE [Suspect]
     Active Substance: BETAMETHASONE\BETAMETHASONE DIPROPIONATE
     Indication: Product used for unknown indication
     Dosage: 1 DF BID / 1 DF DAILY / DOSE TEXT: UNK
     Route: 065
  40. STRATTERA [Suspect]
     Active Substance: ATOMOXETINE HYDROCHLORIDE
     Dosage: UNKNOWN
     Route: 065
  41. CALCIUM PANTOTHENATE [Suspect]
     Active Substance: CALCIUM PANTOTHENATE
     Dosage: 1 DF UNK
     Route: 065
  42. TRICHOLINE CITRATE [Suspect]
     Active Substance: TRICHOLINE CITRATE
     Route: 065
  43. CALCIUM CARBONATE [Suspect]
     Active Substance: CALCIUM CARBONATE
     Route: 065
  44. HYDROCORTISONE ACETATE [Suspect]
     Active Substance: HYDROCORTISONE ACETATE
     Dosage: 50 MG DAILY / 25 MG DAILY / DOSE TEXT: 2 EVERY 1 DAYS
     Route: 065
  45. BUPRENORPHINE [Suspect]
     Active Substance: BUPRENORPHINE
     Route: 065
  46. MAGNESIUM CARBONATE [Suspect]
     Active Substance: MAGNESIUM CARBONATE
     Route: 065
  47. ERENUMAB [Suspect]
     Active Substance: ERENUMAB
     Route: 065
  48. PREDNICARBATE [Suspect]
     Active Substance: PREDNICARBATE
     Route: 065
  49. CYANOCOBALAMIN [Suspect]
     Active Substance: CYANOCOBALAMIN
     Route: 065
  50. BOTOX [Suspect]
     Active Substance: ONABOTULINUMTOXINA
     Indication: Product used for unknown indication
     Dosage: 1 DAILY DF
     Route: 065
  51. THIAMINE HYDROCHLORIDE [Suspect]
     Active Substance: THIAMINE HYDROCHLORIDE
     Route: 065
  52. RIBOFLAVIN [Suspect]
     Active Substance: RIBOFLAVIN
     Route: 065
  53. PYRIDOXINE HYDROCHLORIDE [Suspect]
     Active Substance: PYRIDOXINE HYDROCHLORIDE
     Route: 065
  54. CETIRIZINE HYDROCHLORIDE\PSEUDOEPHEDRINE HYDROCHLORIDE [Suspect]
     Active Substance: CETIRIZINE HYDROCHLORIDE\PSEUDOEPHEDRINE HYDROCHLORIDE
     Route: 048
  55. TRIAMCINOLONE ACETONIDE [Suspect]
     Active Substance: TRIAMCINOLONE ACETONIDE
     Dosage: 1 EVERY 2 DAYS
  56. ACETAMINOPHEN [Suspect]
     Active Substance: ACETAMINOPHEN
     Route: 065
  57. CALCIUM GLUCONATE [Suspect]
     Active Substance: CALCIUM GLUCONATE
     Route: 065
  58. CORTISONE [Suspect]
     Active Substance: CORTISONE
     Dosage: 25 MG BID / 2 DF BID
     Route: 065
  59. ERGOCALCIFEROL [Suspect]
     Active Substance: ERGOCALCIFEROL
     Dosage: 1 DF UNK
     Route: 065
  60. FOLIC ACID [Suspect]
     Active Substance: FOLIC ACID
     Dosage: 1 DF UNK
     Route: 065
  61. BUTRANS [Suspect]
     Active Substance: BUPRENORPHINE
     Indication: Product used for unknown indication
     Route: 065
  62. MILNACIPRAN HYDROCHLORIDE [Suspect]
     Active Substance: MILNACIPRAN HYDROCHLORIDE
     Dosage: 1 DF BID
     Route: 065
  63. VITAMINS [Suspect]
     Active Substance: VITAMINS
     Dosage: 1 DF UNK
     Route: 065
  64. PAROXETINE [Suspect]
     Active Substance: PAROXETINE
     Route: 065
  65. RIBOFLAVIN\THIAMINE HYDROCHLORIDE [Suspect]
     Active Substance: RIBOFLAVIN\THIAMINE HYDROCHLORIDE
     Dosage: 1 DF UNK
     Route: 065
  66. VITAMIN A [Suspect]
     Active Substance: VITAMIN A
     Dosage: 1 DF UNK
     Route: 065
  67. VITAMINS NOS [Suspect]
     Active Substance: VITAMINS
     Dosage: 1 DF UNK
     Route: 065
  68. DEXPANTHENOL\ERGOCALCIFEROL\NIACINAMIDE\PYRIDOXINE HYDROCHLORIDE [Suspect]
     Active Substance: DEXPANTHENOL\ERGOCALCIFEROL\NIACINAMIDE\PYRIDOXINE HYDROCHLORIDE
  69. BETAMETHASONE VALERATE [Suspect]
     Active Substance: BETAMETHASONE VALERATE
     Dosage: 1 DF DAILY / 1 DF DAILY / 1 DF QOD
  70. VITAMIN D [Suspect]
     Active Substance: VITAMIN D NOS
  71. CYCLOBENZAPRINE [Suspect]
     Active Substance: CYCLOBENZAPRINE
     Indication: Product used for unknown indication
     Dosage: 1 DF QD / DOSE TEXT: 1 EVERY DAY / 1 DF QOD
     Route: 065
  72. DOMPERIDONE MALEATE [Suspect]
     Active Substance: DOMPERIDONE MALEATE
     Indication: Product used for unknown indication
     Dosage: 1 DF DAILY / 3 DF BID / 1 DF UNK / 1 DF DAILY / DOSE TEXT: CYCLICAL
     Route: 065

REACTIONS (15)
  - Abdominal pain upper [Unknown]
  - Taste disorder [Unknown]
  - Vomiting [Unknown]
  - Drug intolerance [Unknown]
  - Drug ineffective [Unknown]
  - Off label use [Unknown]
  - Product use in unapproved indication [Unknown]
  - Blepharospasm [Unknown]
  - Epilepsy [Unknown]
  - Gastrooesophageal reflux disease [Unknown]
  - Hypoaesthesia [Unknown]
  - Memory impairment [Unknown]
  - Migraine [Unknown]
  - Pain [Unknown]
  - Paraesthesia [Unknown]
